FAERS Safety Report 7018464-6 (Version None)
Quarter: 2010Q3

REPORT INFORMATION
  Report Type: 
  Country: None (occurrence: None)
  Receive Date: 20100928
  Receipt Date: 20100917
  Transmission Date: 20110219
  Serious: Yes (Other)
  Sender: FDA-Public Use
  Company Number: US-SANOFI-AVENTIS-2010SA057403

PATIENT
  Age: 83 Year
  Sex: Male

DRUGS (2)
  1. LANTUS [Suspect]
     Indication: TYPE 2 DIABETES MELLITUS
     Dosage: DOSE:16 UNIT(S)
     Route: 058
  2. OPTICLICK [Suspect]
     Dates: start: 20070101

REACTIONS (2)
  - CONFUSIONAL STATE [None]
  - PARKINSON'S DISEASE [None]
